FAERS Safety Report 9057166 (Version 1)
Quarter: 2013Q1

REPORT INFORMATION
  Report Type: Spontaneous
  Country: MX (occurrence: MX)
  Receive Date: 20130131
  Receipt Date: 20130131
  Transmission Date: 20140127
  Serious: Yes (Other)
  Sender: FDA-Public Use
  Company Number: PHHY2013MX007545

PATIENT
  Age: 80 Year
  Sex: Female

DRUGS (6)
  1. EXFORGE [Suspect]
     Indication: HYPERTENSION
     Dosage: 1 DF, DAILY (160 MG VALS AND 5 MG AMLO)
     Route: 048
  2. ASPIRIN PROTECT [Concomitant]
     Indication: CARDIAC DISORDER
     Dosage: 1 DF, DAILY
  3. EBIXA [Concomitant]
     Indication: DEPRESSION
     Dosage: 1 DF, DAILY
  4. MODIODAL [Concomitant]
     Indication: SLEEP DISORDER
     Dosage: 1 DF, DAILY
  5. XARELTO [Concomitant]
     Indication: ANTICOAGULANT THERAPY
     Dosage: 1 DF, DAILY
  6. PANTOPRAZOLE [Concomitant]
     Indication: ABDOMINAL DISCOMFORT
     Dosage: 1 DF, DAILY

REACTIONS (6)
  - Cerebral thrombosis [Not Recovered/Not Resolved]
  - Brain injury [Not Recovered/Not Resolved]
  - Hemiplegia [Not Recovered/Not Resolved]
  - Cardiomegaly [Not Recovered/Not Resolved]
  - Blindness [Not Recovered/Not Resolved]
  - Feeling abnormal [Unknown]
